FAERS Safety Report 24129157 (Version 1)
Quarter: 2024Q3

REPORT INFORMATION
  Report Type: Spontaneous
  Country: AU (occurrence: AU)
  Receive Date: 20240723
  Receipt Date: 20240723
  Transmission Date: 20241017
  Serious: Yes (Other)
  Sender: MYLAN
  Company Number: AU-MYLANLABS-2024M1067218

PATIENT
  Age: 4 Decade
  Sex: Male

DRUGS (1)
  1. SILDENAFIL [Suspect]
     Active Substance: SILDENAFIL
     Indication: Product used for unknown indication
     Dosage: 10 MILLIGRAM
     Route: 065

REACTIONS (4)
  - Deafness neurosensory [Recovered/Resolved]
  - Diplacusis [Recovered/Resolved]
  - Tinnitus [Recovered/Resolved]
  - Drug abuse [Recovered/Resolved]
